FAERS Safety Report 7836769-3 (Version None)
Quarter: 2011Q4

REPORT INFORMATION
  Report Type: 
  Country: None (occurrence: None)
  Receive Date: 20111024
  Receipt Date: 20110729
  Transmission Date: 20120403
  Serious: No
  Sender: FDA-Public Use
  Company Number: US-ABBOTT-11P-163-0842898-00

PATIENT
  Sex: Female

DRUGS (5)
  1. ALEVE [Concomitant]
     Indication: PAIN
  2. LUPRON DEPOT [Suspect]
     Indication: ENDOMETRIOSIS
     Route: 030
     Dates: start: 20110729
  3. EFFEXOR [Concomitant]
     Indication: DEPRESSION
     Route: 048
  4. LUPRON DEPOT [Suspect]
     Indication: ENDOMETRIOSIS
     Route: 058
     Dates: start: 20110627, end: 20110627
  5. IBUPROFEN [Concomitant]
     Indication: PAIN

REACTIONS (2)
  - DIARRHOEA [None]
  - HOT FLUSH [None]
